FAERS Safety Report 8391761-8 (Version None)
Quarter: 2012Q2

REPORT INFORMATION
  Report Type: 
  Country: None (occurrence: None)
  Receive Date: 20120529
  Receipt Date: 20120523
  Transmission Date: 20120825
  Serious: Yes (Death)
  Sender: FDA-Public Use
  Company Number: FI-ROCHE-1072699

PATIENT
  Sex: Female

DRUGS (5)
  1. ALTEPLASE [Suspect]
     Indication: THROMBOLYSIS
     Dosage: 5 MG + 0.5 MG/HR
     Route: 013
     Dates: start: 20100101, end: 20100101
  2. HEPARIN [Concomitant]
     Dates: start: 20100101, end: 20100101
  3. WARFARIN SODIUM [Concomitant]
  4. ENOXAPARIN SODIUM [Concomitant]
     Indication: THROMBOLYSIS
     Route: 058
     Dates: start: 20100101, end: 20100101
  5. ENOXAPARIN SODIUM [Concomitant]

REACTIONS (1)
  - CEREBRAL HAEMORRHAGE [None]
